FAERS Safety Report 9385866 (Version 1)
Quarter: 2013Q3

REPORT INFORMATION
  Report Type: Spontaneous
  Country: JP (occurrence: JP)
  Receive Date: 20130705
  Receipt Date: 20130705
  Transmission Date: 20140515
  Serious: Yes (Other)
  Sender: FDA-Public Use
  Company Number: JP-009507513-1307JPN001038

PATIENT
  Age: 44 Year
  Sex: Female
  Weight: 49 kg

DRUGS (8)
  1. PEGINTRON [Suspect]
     Indication: CHRONIC HEPATITIS C
     Dosage: 1.5 MICROGRAM PER KILOGRAM, QW
     Route: 058
     Dates: start: 20130412, end: 20130529
  2. REBETOL [Suspect]
     Indication: CHRONIC HEPATITIS C
     Dosage: 600 MG, QD
     Route: 048
     Dates: start: 20130412, end: 20130418
  3. REBETOL [Suspect]
     Dosage: 400 MG, QD
     Route: 048
     Dates: start: 20130419, end: 20130508
  4. REBETOL [Suspect]
     Dosage: 200 MG, QD
     Dates: start: 20130509, end: 20130529
  5. TELAVIC [Suspect]
     Indication: CHRONIC HEPATITIS C
     Dosage: 1500 MG, QD
     Route: 048
     Dates: start: 20130412, end: 20130529
  6. NAUZELIN [Concomitant]
     Indication: CHRONIC HEPATITIS C
     Dosage: UNK UNK, PRN
     Route: 048
     Dates: start: 20130420, end: 20130605
  7. CALONAL [Concomitant]
     Indication: CHRONIC HEPATITIS C
     Dosage: UNK, PRN
     Route: 048
     Dates: start: 20130420, end: 20130605
  8. GASMOTIN [Concomitant]
     Indication: CHRONIC HEPATITIS C
     Dosage: 10 DF, TID
     Route: 048
     Dates: start: 20130523

REACTIONS (1)
  - Anaemia [Not Recovered/Not Resolved]
